FAERS Safety Report 12886732 (Version 1)
Quarter: 2016Q4

REPORT INFORMATION
  Report Type: Spontaneous
  Country: CH (occurrence: CH)
  Receive Date: 20161026
  Receipt Date: 20161026
  Transmission Date: 20170207
  Serious: Yes (Hospitalization, Other)
  Sender: FDA-Public Use
  Company Number: CH-ASTRAZENECA-2016SF09464

PATIENT
  Age: 31401 Day
  Sex: Female

DRUGS (18)
  1. PREDNISON [Interacting]
     Active Substance: PREDNISONE
     Indication: POLYARTHRITIS
     Route: 048
     Dates: start: 20160723, end: 20160730
  2. SEROQUEL XR [Interacting]
     Active Substance: QUETIAPINE FUMARATE
     Indication: MENTAL DISORDER
     Route: 048
     Dates: start: 20160722, end: 20160725
  3. PREDNISON [Interacting]
     Active Substance: PREDNISONE
     Indication: POLYARTHRITIS
     Route: 048
     Dates: start: 2016, end: 20160723
  4. DUPHALAC [Concomitant]
     Active Substance: LACTULOSE
     Indication: CONSTIPATION
     Route: 048
     Dates: end: 20160804
  5. SEROQUEL XR [Interacting]
     Active Substance: QUETIAPINE FUMARATE
     Indication: MENTAL DISORDER
     Route: 048
     Dates: start: 20160725, end: 20160804
  6. PREDNISON [Interacting]
     Active Substance: PREDNISONE
     Indication: POLYARTHRITIS
     Route: 048
     Dates: start: 20160730, end: 20160810
  7. CLOPIDOGREL [Concomitant]
     Active Substance: CLOPIDOGREL BISULFATE
     Indication: CEREBROVASCULAR ACCIDENT
     Route: 048
  8. HALDOL [Concomitant]
     Active Substance: HALOPERIDOL
     Indication: MANIA
     Route: 048
     Dates: start: 20160809
  9. LISINOPRIL. [Concomitant]
     Active Substance: LISINOPRIL
     Indication: HYPERTENSION
     Route: 048
  10. MOVICOL [Concomitant]
     Active Substance: POLYETHYLENE GLYCOL 3350\POTASSIUM CHLORIDE\SODIUM BICARBONATE\SODIUM CHLORIDE
     Indication: CONSTIPATION
     Route: 048
     Dates: end: 20160804
  11. IMPORTAL [Concomitant]
     Active Substance: LACTITOL
     Indication: CONSTIPATION
     Route: 048
     Dates: start: 20160806
  12. REMERON [Interacting]
     Active Substance: MIRTAZAPINE
     Indication: MENTAL DISORDER
     Route: 048
     Dates: start: 2016, end: 20160722
  13. DEPAKINE CHRONO [Interacting]
     Active Substance: VALPROATE SODIUM
     Indication: MANIA
     Route: 048
     Dates: start: 20160726, end: 20160730
  14. IMOVANE [Concomitant]
     Active Substance: ZOPICLONE
     Indication: MENTAL DISORDER
     Dosage: 7.5MG UNKNOWN
     Route: 048
     Dates: end: 20160811
  15. SEROQUEL XR [Suspect]
     Active Substance: QUETIAPINE FUMARATE
     Indication: MENTAL DISORDER
     Route: 048
     Dates: start: 2016, end: 20160719
  16. SEROQUEL XR [Interacting]
     Active Substance: QUETIAPINE FUMARATE
     Indication: MENTAL DISORDER
     Route: 048
     Dates: start: 20160719, end: 20160722
  17. DISTRANEURIN [Concomitant]
     Active Substance: CLOMETHIAZOLE
     Indication: MENTAL DISORDER
     Route: 048
  18. DEPAKINE CHRONO [Interacting]
     Active Substance: VALPROATE SODIUM
     Indication: MANIA
     Route: 048
     Dates: start: 20160730

REACTIONS (4)
  - Inappropriate antidiuretic hormone secretion [Recovering/Resolving]
  - Mania [Recovered/Resolved]
  - Acute kidney injury [Unknown]
  - Drug interaction [Unknown]

NARRATIVE: CASE EVENT DATE: 20160715
